FAERS Safety Report 9658989 (Version 2)
Quarter: 2014Q1

REPORT INFORMATION
  Report Type: Spontaneous
  Country: IT (occurrence: IT)
  Receive Date: 20131031
  Receipt Date: 20140103
  Transmission Date: 20141002
  Serious: Yes (Hospitalization)
  Sender: FDA-Public Use
  Company Number: IT-009507513-1310ITA013849

PATIENT
  Age: 61 Year
  Sex: Female

DRUGS (2)
  1. LOSAZID 50MG + 12,5MG COMPRESSE RIVESTITE CON FILM [Suspect]
     Indication: HYPERTENSION
     Dosage: 50 MG/12.5 MG, QD
     Route: 048
     Dates: start: 20110101, end: 20131013
  2. SELES BETA [Suspect]
     Indication: HYPERTENSION
     Dosage: UNK
     Route: 048
     Dates: start: 20110101, end: 20131013

REACTIONS (4)
  - Photophobia [Not Recovered/Not Resolved]
  - Vertigo [Not Recovered/Not Resolved]
  - Headache [Not Recovered/Not Resolved]
  - Nausea [Not Recovered/Not Resolved]
